FAERS Safety Report 19912748 (Version 1)
Quarter: 2021Q4

REPORT INFORMATION
  Report Type: Spontaneous
  Country: US (occurrence: US)
  Receive Date: 20211004
  Receipt Date: 20211004
  Transmission Date: 20220303
  Serious: Yes (Hospitalization, Other)
  Sender: FDA-Public Use
  Company Number: US-PFIZER INC-2021810366

PATIENT
  Age: 82 Year
  Sex: Male
  Weight: 203 kg

DRUGS (3)
  1. VYNDAMAX [Suspect]
     Active Substance: TAFAMIDIS
     Indication: Cardiomyopathy
     Dosage: 61 MG
     Dates: start: 2021
  2. VYNDAMAX [Suspect]
     Active Substance: TAFAMIDIS
     Indication: Amyloidosis
  3. MULTAQ [Suspect]
     Active Substance: DRONEDARONE
     Dosage: 400 MG, 2X/DAY
     Dates: start: 202108, end: 202109

REACTIONS (3)
  - Fall [Unknown]
  - Joint injury [Unknown]
  - Haemorrhage [Unknown]

NARRATIVE: CASE EVENT DATE: 20210910
